FAERS Safety Report 9177349 (Version 1)
Quarter: 2013Q1

REPORT INFORMATION
  Report Type: Spontaneous
  Country: ES (occurrence: ES)
  Receive Date: 20130321
  Receipt Date: 20130321
  Transmission Date: 20140127
  Serious: Yes (Hospitalization)
  Sender: FDA-Public Use
  Company Number: ES-ELI_LILLY_AND_COMPANY-ES201303005915

PATIENT
  Age: 83 Year
  Sex: Female
  Weight: 56 kg

DRUGS (6)
  1. FORSTEO [Suspect]
     Indication: OSTEOPOROSIS
     Dosage: 20 UG, QD
     Route: 058
     Dates: start: 20100503
  2. FORSTEO [Suspect]
     Dosage: 20 UG, QD
     Route: 058
  3. IDEOS [Concomitant]
     Indication: OSTEOPOROSIS
     Dosage: UNK, UNKNOWN
     Route: 048
  4. VESICARE [Concomitant]
     Indication: URINARY INCONTINENCE
     Dosage: UNK, UNKNOWN
     Route: 048
  5. ATORVASTATINA [Concomitant]
     Indication: BLOOD CHOLESTEROL INCREASED
     Dosage: UNK, QD
     Route: 048
     Dates: start: 2008
  6. PLANTABEN [Concomitant]
     Indication: CONSTIPATION
     Dosage: UNK, QD
     Route: 048

REACTIONS (1)
  - Intestinal obstruction [Recovering/Resolving]
